FAERS Safety Report 7111405-2 (Version None)
Quarter: 2010Q4

REPORT INFORMATION
  Report Type: 
  Country: None (occurrence: None)
  Receive Date: 20101118
  Receipt Date: 20100105
  Transmission Date: 20110411
  Serious: No
  Sender: FDA-Public Use
  Company Number: US-TEVA-220323USA

PATIENT
  Sex: Male
  Weight: 72.64 kg

DRUGS (2)
  1. ALBUTEROL SULFATE AUTOHALER [Suspect]
     Indication: ASTHMA
     Dosage: 2-PUFFS TID
     Route: 055
     Dates: start: 20090601
  2. ATENOLOL [Suspect]
     Dosage: DOSAGE INCREASED
     Route: 048

REACTIONS (2)
  - CHEST PAIN [None]
  - PALPITATIONS [None]
